FAERS Safety Report 8101315-6 (Version None)
Quarter: 2012Q1

REPORT INFORMATION
  Report Type: 
  Country: None (occurrence: None)
  Receive Date: 20120131
  Receipt Date: 20120124
  Transmission Date: 20120608
  Serious: Yes (Other)
  Sender: FDA-Public Use
  Company Number: US-TEVA-319145USA

PATIENT
  Sex: Male
  Weight: 74.91 kg

DRUGS (4)
  1. FEXOFENADINE [Concomitant]
     Dosage: 180 MILLIGRAM;
  2. SIMVASTATIN [Suspect]
     Dosage: 40 MILLIGRAM;
     Dates: start: 20110101, end: 20110131
  3. ATENOLOL [Concomitant]
  4. ATORVASTATIN CALCIUM [Suspect]
     Indication: VASCULAR GRAFT
     Dosage: 40 MILLIGRAM;
     Route: 048
     Dates: start: 19990101

REACTIONS (7)
  - SWELLING FACE [None]
  - URTICARIA [None]
  - SWOLLEN TONGUE [None]
  - WEIGHT DECREASED [None]
  - DRUG HYPERSENSITIVITY [None]
  - PRURITUS [None]
  - MUSCULAR WEAKNESS [None]
